FAERS Safety Report 7441854-4 (Version None)
Quarter: 2011Q2

REPORT INFORMATION
  Report Type: 
  Country: None (occurrence: None)
  Receive Date: 20110428
  Receipt Date: 20110419
  Transmission Date: 20111010
  Serious: Yes (Other)
  Sender: FDA-Public Use
  Company Number: US-ELI_LILLY_AND_COMPANY-US201104006526

PATIENT
  Age: 45 Year
  Sex: Male

DRUGS (10)
  1. METFORMIN [Concomitant]
  2. CLORAZEPATE DIPOTASSIUM [Concomitant]
  3. CARISOPRODOL [Concomitant]
  4. FLONASE [Concomitant]
  5. LORAZEPAM [Concomitant]
  6. CYMBALTA [Suspect]
     Indication: MAJOR DEPRESSION
     Dosage: 180 MG, QD
  7. CYMBALTA [Suspect]
     Dosage: 60 MG, UNK
  8. RISPERDAL [Concomitant]
  9. TRAMADOL [Concomitant]
  10. PROTONIX [Concomitant]

REACTIONS (4)
  - OVERDOSE [None]
  - CEREBROVASCULAR ACCIDENT [None]
  - DEPRESSION [None]
  - NEUROLOGICAL SYMPTOM [None]
